FAERS Safety Report 6133603-7 (Version None)
Quarter: 2009Q1

REPORT INFORMATION
  Report Type: 
  Country: None (occurrence: None)
  Receive Date: 20090325
  Receipt Date: 20090325
  Transmission Date: 20090719
  Serious: Yes (Death, Life-Threatening, Hospitalization, Other)
  Sender: FDA-Public Use
  Company Number: None

PATIENT
  Age: 60 Year
  Sex: Female
  Weight: 58.9676 kg

DRUGS (1)
  1. REMICADE [Suspect]

REACTIONS (3)
  - ASPERGILLOSIS [None]
  - HEART DISEASE CONGENITAL [None]
  - SPLEEN DISORDER [None]
